FAERS Safety Report 17946068 (Version 1)
Quarter: 2020Q2

REPORT INFORMATION
  Report Type: Spontaneous
  Country: GB (occurrence: GB)
  Receive Date: 20200625
  Receipt Date: 20200625
  Transmission Date: 20200714
  Serious: Yes (Hospitalization, Other)
  Sender: FDA-Public Use
  Company Number: GB-SA-2020SA159393

PATIENT

DRUGS (5)
  1. TRIAMCINOLONE ACETONIDE. [Suspect]
     Active Substance: TRIAMCINOLONE ACETONIDE
     Indication: POST HERPETIC NEURALGIA
     Dosage: 80 MG LUMBAR EPIDURAL DEPOT INJECTION
     Route: 008
     Dates: start: 2009
  2. ATAZANAVIR;RITONAVIR [Interacting]
     Active Substance: ATAZANAVIR\RITONAVIR
     Indication: HIV INFECTION
     Dosage: UNK
  3. TENOFOVIR [Concomitant]
     Active Substance: TENOFOVIR
     Indication: HIV INFECTION
     Dosage: UNK
  4. TRIAMCINOLONE ACETONIDE. [Interacting]
     Active Substance: TRIAMCINOLONE ACETONIDE
     Indication: ANALGESIC THERAPY
     Dosage: UNK
     Route: 008
     Dates: start: 2004
  5. EMTRICITABINE [Concomitant]
     Active Substance: EMTRICITABINE
     Indication: HIV INFECTION
     Dosage: UNK

REACTIONS (7)
  - Hyperglycaemic hyperosmolar nonketotic syndrome [Unknown]
  - Hirsutism [Unknown]
  - Cushing^s syndrome [Unknown]
  - Lipohypertrophy [Unknown]
  - Off label use [Unknown]
  - Swelling face [Unknown]
  - Drug interaction [Unknown]
